FAERS Safety Report 8971465 (Version 1)
Quarter: 2012Q4

REPORT INFORMATION
  Report Type: 
  Country: GB (occurrence: GB)
  Receive Date: 20121217
  Receipt Date: 20121217
  Transmission Date: 20130627
  Serious: Yes (Other)
  Sender: FDA-Public Use
  Company Number: PHHY2012GB114904

PATIENT
  Age: 32 Year
  Sex: Female
  Weight: 52 kg

DRUGS (1)
  1. LORAZEPAM [Suspect]
     Indication: AGITATION
     Dosage: 1.5 mg
     Route: 048
     Dates: start: 20121120, end: 20121130

REACTIONS (2)
  - Disinhibition [Unknown]
  - Sexually inappropriate behaviour [Unknown]
